FAERS Safety Report 25051180 (Version 2)
Quarter: 2025Q2

REPORT INFORMATION
  Report Type: Spontaneous
  Country: ES (occurrence: ES)
  Receive Date: 20250307
  Receipt Date: 20250403
  Transmission Date: 20250717
  Serious: Yes (Hospitalization, Other)
  Sender: EXELIXIS
  Company Number: ES-IPSEN Group, Research and Development-2025-04791

PATIENT
  Age: 53 Year
  Sex: Male

DRUGS (5)
  1. CABOMETYX [Suspect]
     Active Substance: CABOZANTINIB S-MALATE
     Indication: Papillary renal cell carcinoma
     Route: 065
     Dates: start: 20230620, end: 20231009
  2. CABOMETYX [Suspect]
     Active Substance: CABOZANTINIB S-MALATE
     Indication: Off label use
     Route: 065
     Dates: start: 20231116
  3. CABOMETYX [Suspect]
     Active Substance: CABOZANTINIB S-MALATE
     Route: 065
     Dates: start: 20240708
  4. NIVOLUMAB [Suspect]
     Active Substance: NIVOLUMAB
     Indication: Papillary renal cell carcinoma
     Route: 065
     Dates: start: 20230620, end: 20231009
  5. NIVOLUMAB [Suspect]
     Active Substance: NIVOLUMAB
     Route: 065
     Dates: start: 20231116

REACTIONS (4)
  - Immune-mediated lung disease [Unknown]
  - Immune-mediated enterocolitis [Unknown]
  - Immune-mediated dermatitis [Unknown]
  - Diarrhoea [Unknown]

NARRATIVE: CASE EVENT DATE: 20231001
